FAERS Safety Report 7288534-6 (Version None)
Quarter: 2011Q1

REPORT INFORMATION
  Report Type: 
  Country: None (occurrence: None)
  Receive Date: 20110201
  Receipt Date: 20110117
  Transmission Date: 20110831
  Serious: Yes (Hospitalization)
  Sender: FDA-Public Use
  Company Number: 1000018534

PATIENT
  Age: 57 Year
  Sex: Female

DRUGS (5)
  1. CITALOPRAM HYDROBROMIDE [Suspect]
     Dates: start: 20100101, end: 20101230
  2. LYRICA [Concomitant]
  3. ZYPREXA [Concomitant]
  4. DEPAKOTE [Concomitant]
  5. LASIX [Suspect]
     Dates: start: 20100101, end: 20101230

REACTIONS (3)
  - BRAIN OEDEMA [None]
  - HYPONATRAEMIA [None]
  - TONIC CLONIC MOVEMENTS [None]
